FAERS Safety Report 7760077-2 (Version None)
Quarter: 2011Q3

REPORT INFORMATION
  Report Type: 
  Country: None (occurrence: None)
  Receive Date: 20110919
  Receipt Date: 20110916
  Transmission Date: 20111222
  Serious: Yes (Other)
  Sender: FDA-Public Use
  Company Number: US-PFIZER INC-2010122806

PATIENT
  Sex: Female
  Weight: 52.154 kg

DRUGS (4)
  1. ZARONTIN [Suspect]
     Dosage: 1000 MG, UNK
     Route: 048
  2. ZARONTIN [Suspect]
     Indication: CONVULSION
     Dosage: 500 MG CAPSULES IN THE MORNING AND 250 MG AT NIGHT
     Route: 048
  3. ZARONTIN [Suspect]
     Indication: EPILEPSY
     Dosage: 500 MG, UNK
     Route: 048
  4. ZARONTIN [Suspect]
     Dosage: 1250 MG, UNK
     Route: 048

REACTIONS (13)
  - FATIGUE [None]
  - ORAL PAIN [None]
  - NAUSEA [None]
  - STRESS FRACTURE [None]
  - LIGAMENT RUPTURE [None]
  - LIGAMENT SPRAIN [None]
  - IRRITABILITY [None]
  - HICCUPS [None]
  - VITAMIN D DECREASED [None]
  - JOINT SWELLING [None]
  - INSOMNIA [None]
  - ARTHRALGIA [None]
  - ANXIETY [None]
